FAERS Safety Report 6044986-0 (Version None)
Quarter: 2009Q1

REPORT INFORMATION
  Report Type: 
  Country: None (occurrence: None)
  Receive Date: 20090116
  Receipt Date: 20090116
  Transmission Date: 20090719
  Serious: Yes (Other)
  Sender: FDA-Public Use
  Company Number: None

PATIENT
  Age: 51 Year
  Sex: Male
  Weight: 81.6475 kg

DRUGS (1)
  1. AZATHIOPRINE [Suspect]
     Indication: CONGENITAL SYPHILITIC OSTEOCHONDRITIS
     Dosage: 2 TABLETS / ONCE DAILY MOUTH
     Route: 048
     Dates: start: 20081215

REACTIONS (2)
  - NAIL DISORDER [None]
  - ONYCHOCLASIS [None]
